FAERS Safety Report 11756168 (Version 1)
Quarter: 2015Q4

REPORT INFORMATION
  Report Type: Spontaneous
  Country: GB (occurrence: GB)
  Receive Date: 20151119
  Receipt Date: 20151119
  Transmission Date: 20160304
  Serious: Yes (Other)
  Sender: FDA-Public Use
  Company Number: PHHY2015GB147365

PATIENT
  Age: 90 Year
  Sex: Male
  Weight: 80 kg

DRUGS (5)
  1. RIFAMPICIN [Suspect]
     Active Substance: RIFAMPIN
     Indication: ARTHRITIS BACTERIAL
     Route: 048
  2. TAZOCIN [Concomitant]
     Active Substance: PIPERACILLIN SODIUM\TAZOBACTAM SODIUM
     Indication: PRODUCT USED FOR UNKNOWN INDICATION
     Route: 042
  3. PREDNISOLONE. [Concomitant]
     Active Substance: PREDNISOLONE
     Indication: PRODUCT USED FOR UNKNOWN INDICATION
     Route: 065
  4. MOVICOL                            /08437601/ [Concomitant]
     Indication: PRODUCT USED FOR UNKNOWN INDICATION
     Route: 065
  5. LACTULOSE. [Concomitant]
     Active Substance: LACTULOSE
     Indication: PRODUCT USED FOR UNKNOWN INDICATION
     Route: 065

REACTIONS (3)
  - Haematuria [Recovered/Resolved]
  - Rectal haemorrhage [Recovered/Resolved]
  - Purpura [Recovered/Resolved]
